FAERS Safety Report 6746557-7 (Version None)
Quarter: 2010Q2

REPORT INFORMATION
  Report Type: 
  Country: None (occurrence: None)
  Receive Date: 20100528
  Receipt Date: 20100520
  Transmission Date: 20101027
  Serious: Yes (Death)
  Sender: FDA-Public Use
  Company Number: JP-ROCHE-704925

PATIENT
  Sex: Male

DRUGS (5)
  1. AVASTIN [Suspect]
     Indication: LUNG ADENOCARCINOMA METASTATIC
     Dosage: FORM: INJECTION
     Route: 041
     Dates: start: 20100511, end: 20100511
  2. PACLITAXEL [Concomitant]
     Dosage: FORM: INJECTION
     Route: 041
     Dates: start: 20100511, end: 20100511
  3. PARAPLATIN [Concomitant]
     Dosage: FORM: INJECTION
     Route: 041
     Dates: start: 20100511, end: 20100511
  4. RESTAMIN [Concomitant]
     Route: 048
     Dates: start: 20100511, end: 20100511
  5. MYSLEE [Concomitant]
     Route: 048
     Dates: start: 20100511, end: 20100511

REACTIONS (3)
  - ASPHYXIA [None]
  - HAEMOPTYSIS [None]
  - HYPOXIA [None]
